FAERS Safety Report 19819796 (Version 1)
Quarter: 2021Q3

REPORT INFORMATION
  Report Type: Report from Study
  Country: CA (occurrence: CA)
  Receive Date: 20210913
  Receipt Date: 20210913
  Transmission Date: 20211014
  Serious: Yes (Other)
  Sender: FDA-Public Use
  Company Number: CA-CELLTRION INC.-2021CA012386

PATIENT

DRUGS (12)
  1. PLAQUENIL [Concomitant]
     Active Substance: HYDROXYCHLOROQUINE SULFATE
  2. ARAVA [Concomitant]
     Active Substance: LEFLUNOMIDE
  3. POTASSIUM [Concomitant]
     Active Substance: POTASSIUM
  4. MORPHINE [Concomitant]
     Active Substance: MORPHINE
  5. HCTZ [Concomitant]
     Active Substance: HYDROCHLOROTHIAZIDE
  6. TRUXIMA [Suspect]
     Active Substance: RITUXIMAB-ABBS
     Indication: RHEUMATOID ARTHRITIS
     Dosage: 1000 MG
     Route: 042
     Dates: start: 20200525
  7. TYLENOL [Concomitant]
     Active Substance: ACETAMINOPHEN
  8. SENOKOT [Concomitant]
     Active Substance: SENNOSIDES
  9. RISEDRONATE [Concomitant]
     Active Substance: RISEDRONATE SODIUM
  10. AMLODIPINE [Concomitant]
     Active Substance: AMLODIPINE BESYLATE
  11. ZOFRAN [Concomitant]
     Active Substance: ONDANSETRON HYDROCHLORIDE
  12. PREDNISONE. [Concomitant]
     Active Substance: PREDNISONE

REACTIONS (3)
  - Thrombosis [Recovered/Resolved]
  - Kidney infection [Recovered/Resolved]
  - Therapy interrupted [Unknown]
